FAERS Safety Report 16747868 (Version 1)
Quarter: 2019Q3

REPORT INFORMATION
  Report Type: Spontaneous
  Country: US (occurrence: US)
  Receive Date: 20190827
  Receipt Date: 20190827
  Transmission Date: 20191005
  Serious: Yes (Hospitalization, Other)
  Sender: FDA-Public Use
  Company Number: US-SHIRE-US201910841

PATIENT
  Sex: Female
  Weight: 71.66 kg

DRUGS (2)
  1. GATTEX [Suspect]
     Active Substance: TEDUGLUTIDE\WATER
     Indication: SHORT-BOWEL SYNDROME
     Dosage: 0.358 MILLIGRAM (3.58 MG), 1X/DAY:QD
     Route: 050
  2. GATTEX [Suspect]
     Active Substance: TEDUGLUTIDE\WATER
     Dosage: 0.358 MILLIGRAM (3.58 MG), 1X/DAY:QD
     Route: 050

REACTIONS (5)
  - Skin discolouration [Unknown]
  - Ill-defined disorder [Unknown]
  - Muscle spasms [Unknown]
  - Blood potassium abnormal [Unknown]
  - Haemorrhage [Unknown]
